FAERS Safety Report 10240259 (Version 2)
Quarter: 2014Q2

REPORT INFORMATION
  Report Type: Spontaneous
  Country: US (occurrence: US)
  Receive Date: 20140617
  Receipt Date: 20140617
  Transmission Date: 20141212
  Serious: Yes (Other)
  Sender: FDA-Public Use
  Company Number: PHEH2014US009915

PATIENT
  Age: 39 Year
  Sex: Female
  Weight: 50.79 kg

DRUGS (4)
  1. DIOVAN [Suspect]
     Indication: HYPERTENSION
     Dosage: 80 MG, DAILY
     Route: 048
     Dates: end: 20140331
  2. HYDROXYCHLOROQUINE [Suspect]
     Indication: LUPUS NEPHRITIS
     Dosage: UNK UKN, (400 MG ALTERNAING WITH 200 MG EVERY OTHER DAY)
     Dates: start: 20131009
  3. CELLCEPT [Suspect]
     Indication: LUPUS NEPHRITIS
     Dosage: 500 MG, DAILY
     Route: 048
     Dates: start: 20100112, end: 20140110
  4. PREDNISONE [Concomitant]
     Indication: LUPUS NEPHRITIS
     Dosage: 2 MG, QD
     Route: 048
     Dates: start: 2010

REACTIONS (2)
  - Abortion spontaneous [Unknown]
  - Maternal exposure during pregnancy [Unknown]
